FAERS Safety Report 4339308-7 (Version None)
Quarter: 2004Q2

REPORT INFORMATION
  Report Type: 
  Country: None (occurrence: None)
  Receive Date: 20040414
  Receipt Date: 20040414
  Transmission Date: 20050107
  Serious: Yes (Hospitalization, Other)
  Sender: FDA-Public Use
  Company Number: None

PATIENT
  Age: 33 Year
  Sex: Female
  Weight: 61.2356 kg

DRUGS (1)
  1. DURAGESIC [Suspect]
     Indication: PAIN
     Dosage: 75/UG/H EVERY 72 H TRANSDERMAL
     Route: 062
     Dates: start: 20040315, end: 20040401

REACTIONS (6)
  - BILIARY DYSKINESIA [None]
  - DRUG WITHDRAWAL SYNDROME [None]
  - FEELING ABNORMAL [None]
  - PHARMACEUTICAL PRODUCT COMPLAINT [None]
  - SOMNOLENCE [None]
  - VOMITING [None]
